FAERS Safety Report 7364712-2 (Version None)
Quarter: 2011Q1

REPORT INFORMATION
  Report Type: 
  Country: None (occurrence: None)
  Receive Date: 20110321
  Receipt Date: 20110309
  Transmission Date: 20110831
  Serious: Yes (Death, Other)
  Sender: FDA-Public Use
  Company Number: US-ENDO PHARMACEUTICALS INC.-OPIR20110008

PATIENT
  Age: 44 Year
  Sex: Male

DRUGS (2)
  1. XANAX [Suspect]
     Indication: DRUG ABUSE
     Dosage: UNK
  2. OPANA [Suspect]
     Indication: DRUG ABUSE
     Dosage: UNK

REACTIONS (3)
  - DEATH [None]
  - DRUG DIVERSION [None]
  - DRUG ABUSE [None]
